FAERS Safety Report 6873097-7 (Version None)
Quarter: 2010Q3

REPORT INFORMATION
  Report Type: 
  Country: None (occurrence: None)
  Receive Date: 20100723
  Receipt Date: 20090320
  Transmission Date: 20110219
  Serious: Yes (Other)
  Sender: FDA-Public Use
  Company Number: US-PFIZER INC-2008099899

PATIENT
  Sex: Male
  Weight: 88.5 kg

DRUGS (4)
  1. CHANTIX [Suspect]
     Indication: SMOKING CESSATION THERAPY
     Route: 048
     Dates: start: 20081122, end: 20081125
  2. CHANTIX [Suspect]
     Indication: TOBACCO ABUSE
  3. IBUPROFEN [Concomitant]
     Dosage: UNK
  4. FLEXERIL [Concomitant]
     Dosage: UNK

REACTIONS (5)
  - ABDOMINAL PAIN LOWER [None]
  - DIARRHOEA HAEMORRHAGIC [None]
  - DIZZINESS [None]
  - HAEMATOCHEZIA [None]
  - WEIGHT DECREASED [None]
